FAERS Safety Report 22169338 (Version 1)
Quarter: 2023Q2

REPORT INFORMATION
  Report Type: Spontaneous
  Country: US (occurrence: US)
  Receive Date: 20230404
  Receipt Date: 20230404
  Transmission Date: 20230721
  Serious: No
  Sender: FDA-Public Use
  Company Number: US-ABBVIE-4708774

PATIENT
  Sex: Male

DRUGS (3)
  1. DIVALPROEX SODIUM DR [Suspect]
     Active Substance: DIVALPROEX SODIUM
     Indication: Seizure
     Dosage: 500 MILLIGRAM
     Route: 048
     Dates: start: 1985, end: 20230324
  2. DEPAKOTE ER [Suspect]
     Active Substance: DIVALPROEX SODIUM
     Indication: Product used for unknown indication
     Route: 065
  3. TEGRETOL [Concomitant]
     Active Substance: CARBAMAZEPINE
     Indication: Product used for unknown indication
     Dosage: TOOK 1MG PILL AND 1 TEGRETOL?5PM TOOK IT AGAIN?TOOK BOTH TEGRETOL

REACTIONS (8)
  - Balance disorder [Unknown]
  - Drug ineffective [Unknown]
  - Somnolence [Unknown]
  - Hypersomnia [Unknown]
  - Gait disturbance [Unknown]
  - Impaired work ability [Unknown]
  - Blood pressure abnormal [Unknown]
  - Impaired driving ability [Unknown]
